FAERS Safety Report 8839720 (Version 4)
Quarter: 2013Q1

REPORT INFORMATION
  Report Type: Spontaneous
  Country: BR (occurrence: None)
  Receive Date: 20121011
  Receipt Date: 20121226
  Transmission Date: 20140127
  Serious: Yes (Hospitalization, Other)
  Sender: FDA-Public Use
  Company Number: MPS1-1000788

PATIENT
  Age: 4 Year
  Sex: Male
  Weight: 13.6 kg

DRUGS (4)
  1. ALDURAZYME [Suspect]
     Indication: MUCOPOLYSACCHARIDOSIS I
     Route: 042
     Dates: start: 20120910
  2. PROMETHAZINE HYDROCHLORIDE (PROMETHAZINE HYDROCHLORIDE) [Concomitant]
  3. DIPYRONE (METAMIZOLE SODIUM) [Concomitant]
  4. PREDNISOLONE (PREDNISOLONE) [Concomitant]

REACTIONS (13)
  - Urticaria papular [None]
  - Oxygen saturation decreased [None]
  - Cough [None]
  - Agitation [None]
  - Choking [None]
  - Psychomotor hyperactivity [None]
  - Anaphylactic reaction [None]
  - Throat tightness [None]
  - Lip oedema [None]
  - Headache [None]
  - Paradoxical drug reaction [None]
  - Infusion related reaction [None]
  - Agitation [None]
